FAERS Safety Report 15806294 (Version 1)
Quarter: 2019Q1

REPORT INFORMATION
  Report Type: Spontaneous
  Country: US (occurrence: US)
  Receive Date: 20190110
  Receipt Date: 20190110
  Transmission Date: 20190417
  Serious: No
  Sender: FDA-Public Use
  Company Number: US-PFIZER INC-2019006489

PATIENT
  Age: 59 Year
  Sex: Female
  Weight: 90.72 kg

DRUGS (4)
  1. LYRICA [Suspect]
     Active Substance: PREGABALIN
     Indication: HEADACHE
  2. LYRICA [Suspect]
     Active Substance: PREGABALIN
     Indication: FIBROMYALGIA
  3. LYRICA [Suspect]
     Active Substance: PREGABALIN
     Indication: MIGRAINE
  4. LYRICA [Suspect]
     Active Substance: PREGABALIN
     Indication: TRIGEMINAL NEURALGIA
     Dosage: 75 MG THREE TIMES A DAY WITH AN ADDED 25 TO 50 MG WHEN NEEDED

REACTIONS (6)
  - Weight increased [Unknown]
  - Feeling abnormal [Unknown]
  - Memory impairment [Unknown]
  - Arthritis [Unknown]
  - Product dose omission [Unknown]
  - Emotional distress [Unknown]
